FAERS Safety Report 6314502-4 (Version None)
Quarter: 2009Q3

REPORT INFORMATION
  Report Type: 
  Country: None (occurrence: None)
  Receive Date: 20090817
  Receipt Date: 20090817
  Transmission Date: 20100115
  Serious: No
  Sender: FDA-Public Use
  Company Number: None

PATIENT
  Age: 71 Year
  Sex: Female
  Weight: 95.2554 kg

DRUGS (1)
  1. TOPAMAX [Suspect]
     Indication: BACK PAIN
     Dosage: 1 PILL 3 TIMES A DAT PO
     Route: 048
     Dates: start: 20070714, end: 20070724

REACTIONS (7)
  - ACTIVITIES OF DAILY LIVING IMPAIRED [None]
  - CONFUSIONAL STATE [None]
  - DISTURBANCE IN ATTENTION [None]
  - MENTAL IMPAIRMENT [None]
  - MOVEMENT DISORDER [None]
  - TINNITUS [None]
  - UNEVALUABLE EVENT [None]
